FAERS Safety Report 19669365 (Version 2)
Quarter: 2021Q3

REPORT INFORMATION
  Report Type: Spontaneous
  Country: PT (occurrence: AO)
  Receive Date: 20210806
  Receipt Date: 20210819
  Transmission Date: 20211014
  Serious: Yes (Other)
  Sender: FDA-Public Use
  Company Number: PT-PFIZER INC-202100962996

PATIENT
  Age: 35 Year
  Sex: Female

DRUGS (1)
  1. MEDROXYPROGESTERONE ACETATE. [Suspect]
     Active Substance: MEDROXYPROGESTERONE ACETATE
     Indication: SKIN COSMETIC PROCEDURE
     Dosage: 25 MG, DAILY
     Route: 058

REACTIONS (2)
  - Panniculitis [Recovered/Resolved with Sequelae]
  - Off label use [Unknown]
